FAERS Safety Report 5201075-2 (Version None)
Quarter: 2007Q1

REPORT INFORMATION
  Report Type: 
  Country: None (occurrence: None)
  Receive Date: 20070108
  Receipt Date: 20070103
  Transmission Date: 20070707
  Serious: Yes (Hospitalization)
  Sender: FDA-Public Use
  Company Number: US-ELI_LILLY_AND_COMPANY-US200609005680

PATIENT
  Age: 49 Year
  Sex: Male
  Weight: 90.702 kg

DRUGS (2)
  1. BUPROPION HCL [Concomitant]
  2. ZYPREXA [Suspect]
     Indication: DEPRESSION
     Dosage: 2.5 MG, UNK
     Dates: start: 20040101

REACTIONS (4)
  - DIABETES MELLITUS [None]
  - MYOCARDIAL INFARCTION [None]
  - VISION BLURRED [None]
  - WEIGHT DECREASED [None]
